FAERS Safety Report 8901522 (Version 8)
Quarter: 2013Q4

REPORT INFORMATION
  Report Type: Spontaneous
  Country: US (occurrence: US)
  Receive Date: 20121109
  Receipt Date: 20131007
  Transmission Date: 20140711
  Serious: Yes (Hospitalization, Disabling, Other)
  Sender: FDA-Public Use
  Company Number: US-009507513-1211USA002770

PATIENT
  Sex: Female
  Weight: 47.62 kg

DRUGS (6)
  1. FOSAMAX [Suspect]
     Indication: OSTEOPOROSIS
     Dosage: 10 MG, UNK
     Route: 048
     Dates: start: 19951001, end: 20080215
  2. FOSAMAX [Suspect]
     Indication: OSTEOPENIA
     Dosage: 70 MG, UNK
     Route: 048
     Dates: end: 20080215
  3. FOSAMAX [Suspect]
     Indication: OSTEOPOROSIS PROPHYLAXIS
  4. FOSAMAX [Suspect]
     Indication: OSTEOPOROSIS
     Dosage: 70 MG, UNK
     Route: 048
     Dates: start: 20080210, end: 20080816
  5. FOSAMAX [Suspect]
     Indication: OSTEOPENIA
  6. ACTONEL [Suspect]
     Indication: OSTEOPENIA
     Dosage: 150 MG, UNK
     Route: 048
     Dates: start: 20081006, end: 20111121

REACTIONS (36)
  - Femur fracture [Not Recovered/Not Resolved]
  - Intramedullary rod insertion [Not Recovered/Not Resolved]
  - Femur fracture [Not Recovered/Not Resolved]
  - Intramedullary rod insertion [Not Recovered/Not Resolved]
  - Femur fracture [Not Recovered/Not Resolved]
  - Osteoporosis [Not Recovered/Not Resolved]
  - Stress fracture [Not Recovered/Not Resolved]
  - Low turnover osteopathy [Not Recovered/Not Resolved]
  - Gingivectomy [Not Recovered/Not Resolved]
  - Oral surgery [Unknown]
  - Vitamin D deficiency [Unknown]
  - Herpes zoster [Unknown]
  - Depression [Not Recovered/Not Resolved]
  - Cyst [Unknown]
  - Swelling [Unknown]
  - Endodontic procedure [Unknown]
  - Tooth repair [Unknown]
  - Tooth repair [Unknown]
  - Tooth repair [Unknown]
  - Road traffic accident [Unknown]
  - Intervertebral disc degeneration [Unknown]
  - Spondylolisthesis [Unknown]
  - Mental disorder [Unknown]
  - Cholelithiasis [Unknown]
  - Spinal osteoarthritis [Unknown]
  - Radicular pain [Unknown]
  - Bruxism [Unknown]
  - Arthritis [Unknown]
  - Stress [Unknown]
  - Tooth disorder [Unknown]
  - Periodontitis [Unknown]
  - Gingivitis [Unknown]
  - Toothache [Unknown]
  - Back pain [Not Recovered/Not Resolved]
  - Nausea [Unknown]
  - Vomiting [Unknown]
